FAERS Safety Report 21362888 (Version 1)
Quarter: 2022Q3

REPORT INFORMATION
  Report Type: Spontaneous
  Country: US (occurrence: US)
  Receive Date: 20220922
  Receipt Date: 20220922
  Transmission Date: 20221027
  Serious: Yes (Other)
  Sender: FDA-Public Use
  Company Number: US-BRISTOL-MYERS SQUIBB COMPANY-2022-107994

PATIENT
  Age: 37 Year
  Sex: Male
  Weight: 97.522 kg

DRUGS (4)
  1. ELIQUIS [Suspect]
     Active Substance: APIXABAN
     Indication: Deep vein thrombosis
     Dosage: DOSE : 5MG;     FREQ : TWICE A DAY
     Route: 048
     Dates: start: 20220806
  2. RIVAROXABAN [Suspect]
     Active Substance: RIVAROXABAN
     Indication: Deep vein thrombosis
     Route: 065
     Dates: start: 20220715, end: 20220806
  3. LISINOPRIL [Concomitant]
     Active Substance: LISINOPRIL
     Indication: Product used for unknown indication
     Route: 065
  4. CARVEDILOL [Concomitant]
     Active Substance: CARVEDILOL
     Indication: Product used for unknown indication
     Route: 065

REACTIONS (8)
  - Palpitations [Unknown]
  - Dyspnoea [Unknown]
  - Balance disorder [Unknown]
  - Syncope [Unknown]
  - Initial insomnia [Unknown]
  - Depression [Unknown]
  - Blood pressure increased [Unknown]
  - Vertigo [Unknown]

NARRATIVE: CASE EVENT DATE: 20220806
